FAERS Safety Report 7128841-0 (Version None)
Quarter: 2010Q4

REPORT INFORMATION
  Report Type: 
  Country: None (occurrence: None)
  Receive Date: 20101116
  Receipt Date: 20101102
  Transmission Date: 20110411
  Serious: Yes (Other)
  Sender: FDA-Public Use
  Company Number: 021536

PATIENT
  Age: 32 Year
  Sex: Female

DRUGS (13)
  1. KEPPRA [Suspect]
     Indication: EPILEPSY
     Dosage: (250 MG) ; (500 MG)
     Dates: start: 20100930, end: 20101013
  2. KEPPRA [Suspect]
     Indication: EPILEPSY
     Dosage: (500 MG)
     Dates: start: 20101029
  3. FOLIC ACID [Concomitant]
  4. B-COMPLEX /00302401/ [Concomitant]
  5. MAGNESIUM [Concomitant]
  6. TYROSINE [Concomitant]
  7. IRON [Concomitant]
  8. ACCOMIN MULTIVITAMIN [Concomitant]
  9. CALCIUM W/VITAMIN D /00944201/ [Concomitant]
  10. CRANBERRY /01512301/ [Concomitant]
  11. VITAMIN B6 [Concomitant]
  12. FISH OIL [Concomitant]
  13. CLIVE CLINIC'S PURE DIETARY SUPPLEMENTS [Concomitant]

REACTIONS (4)
  - CONDITION AGGRAVATED [None]
  - GRAND MAL CONVULSION [None]
  - PETIT MAL EPILEPSY [None]
  - URINARY TRACT INFECTION [None]
